FAERS Safety Report 14690536 (Version 19)
Quarter: 2019Q4

REPORT INFORMATION
  Report Type: Report from Study
  Country: None (occurrence: US)
  Receive Date: 20180328
  Receipt Date: 20191118
  Transmission Date: 20200122
  Serious: Yes (Hospitalization, Other)
  Sender: FDA-Public Use
  Company Number: US-ABBVIE-18P-163-2281532-00

PATIENT
  Age: 70 Year
  Sex: Male

DRUGS (49)
  1. VENCLEXTA [Suspect]
     Active Substance: VENETOCLAX
     Indication: CHRONIC LYMPHOCYTIC LEUKAEMIA
     Route: 048
     Dates: start: 20180223, end: 20180301
  2. VENCLEXTA [Suspect]
     Active Substance: VENETOCLAX
     Route: 048
     Dates: start: 20180302, end: 20180308
  3. VENCLEXTA [Suspect]
     Active Substance: VENETOCLAX
     Dosage: ALTERNATES 100MG WITH 50MG EVERY OTHER DAY
     Route: 048
     Dates: start: 20180410, end: 20180513
  4. VENCLEXTA [Suspect]
     Active Substance: VENETOCLAX
     Dosage: 200 MILLIGRAM ALTERNATING WITH 300 MILLIGRAM EVERY OTHER DAY
     Route: 048
     Dates: start: 20180821, end: 2018
  5. VENCLEXTA [Suspect]
     Active Substance: VENETOCLAX
     Route: 048
     Dates: start: 2019, end: 2019
  6. CYCLOBENZAPRINE. [Concomitant]
     Active Substance: CYCLOBENZAPRINE
     Indication: BACK DISORDER
  7. HYDROCODONE [Concomitant]
     Active Substance: HYDROCODONE
     Indication: BACK DISORDER
  8. BENADRYL [Concomitant]
     Active Substance: DIPHENHYDRAMINE HYDROCHLORIDE
     Indication: PRODUCT USED FOR UNKNOWN INDICATION
  9. VENCLEXTA [Suspect]
     Active Substance: VENETOCLAX
     Route: 048
     Dates: start: 20180319, end: 201803
  10. VENCLEXTA [Suspect]
     Active Substance: VENETOCLAX
     Route: 048
     Dates: start: 20180323, end: 20180326
  11. VENCLEXTA [Suspect]
     Active Substance: VENETOCLAX
     Route: 048
     Dates: start: 20181026
  12. CITALOPRAM [Concomitant]
     Active Substance: CITALOPRAM HYDROBROMIDE
     Indication: DEPRESSION
     Route: 048
  13. PHENERGAN [Concomitant]
     Active Substance: PROMETHAZINE HYDROCHLORIDE
     Indication: DIARRHOEA
  14. FEXOFENADINE [Concomitant]
     Active Substance: FEXOFENADINE HYDROCHLORIDE
     Indication: HYPERSENSITIVITY
  15. LAMICTAL [Concomitant]
     Active Substance: LAMOTRIGINE
     Indication: PRODUCT USED FOR UNKNOWN INDICATION
  16. VENCLEXTA [Suspect]
     Active Substance: VENETOCLAX
     Route: 048
     Dates: start: 20180723, end: 20180820
  17. VENCLEXTA [Suspect]
     Active Substance: VENETOCLAX
     Route: 048
  18. VENCLEXTA [Suspect]
     Active Substance: VENETOCLAX
     Route: 048
     Dates: end: 201904
  19. VENCLEXTA [Suspect]
     Active Substance: VENETOCLAX
     Route: 048
     Dates: start: 201910, end: 2019
  20. PROPANOLOL [Concomitant]
     Active Substance: PROPRANOLOL HYDROCHLORIDE
     Indication: TREMOR
     Route: 048
  21. FLUDROCORTISONE [Concomitant]
     Active Substance: FLUDROCORTISONE
     Indication: BLOOD PRESSURE MEASUREMENT
     Dosage: PILL
     Dates: start: 201808
  22. FLEXERIL [Concomitant]
     Active Substance: CYCLOBENZAPRINE HYDROCHLORIDE
     Indication: PRODUCT USED FOR UNKNOWN INDICATION
  23. JAKAFI [Concomitant]
     Active Substance: RUXOLITINIB
     Indication: MYELOFIBROSIS
  24. VENCLEXTA [Suspect]
     Active Substance: VENETOCLAX
     Route: 048
     Dates: start: 2019
  25. CYCLOBENZAPRINE. [Concomitant]
     Active Substance: CYCLOBENZAPRINE
     Indication: MUSCULOSKELETAL DISCOMFORT
     Dosage: AS NEEDED
     Route: 048
  26. FUROSEMIDE. [Concomitant]
     Active Substance: FUROSEMIDE
     Indication: PRODUCT USED FOR UNKNOWN INDICATION
     Route: 048
  27. PRIMIDONE. [Concomitant]
     Active Substance: PRIMIDONE
     Indication: PRODUCT USED FOR UNKNOWN INDICATION
  28. NASACORT [Concomitant]
     Active Substance: TRIAMCINOLONE ACETONIDE
     Indication: PRODUCT USED FOR UNKNOWN INDICATION
  29. RITUXAN [Concomitant]
     Active Substance: RITUXIMAB
     Indication: PRODUCT USED FOR UNKNOWN INDICATION
  30. VENCLEXTA [Suspect]
     Active Substance: VENETOCLAX
     Route: 048
     Dates: start: 20180514, end: 2018
  31. TAMSULOSIN [Concomitant]
     Active Substance: TAMSULOSIN
     Indication: DYSURIA
     Dosage: ONE TABLET AT BEDTIME
     Route: 048
  32. FLONASE [Concomitant]
     Active Substance: FLUTICASONE PROPIONATE
     Indication: PRODUCT USED FOR UNKNOWN INDICATION
  33. ALLOPURINOL. [Concomitant]
     Active Substance: ALLOPURINOL
     Indication: BLOOD URIC ACID INCREASED
     Route: 048
  34. PHENERGAN [Concomitant]
     Active Substance: PROMETHAZINE HYDROCHLORIDE
     Indication: NAUSEA
  35. VENCLEXTA [Suspect]
     Active Substance: VENETOCLAX
     Route: 048
     Dates: start: 20180326, end: 2018
  36. VENCLEXTA [Suspect]
     Active Substance: VENETOCLAX
     Route: 048
     Dates: start: 201904, end: 2019
  37. VENCLEXTA [Suspect]
     Active Substance: VENETOCLAX
     Route: 048
     Dates: start: 201905, end: 2019
  38. TAMSULOSIN [Concomitant]
     Active Substance: TAMSULOSIN
     Indication: PROSTATIC DISORDER
  39. PREVACID [Concomitant]
     Active Substance: LANSOPRAZOLE
     Indication: PRODUCT USED FOR UNKNOWN INDICATION
     Dosage: 2-15MG
     Route: 048
  40. TRAMADOL. [Concomitant]
     Active Substance: TRAMADOL
     Indication: BACK DISORDER
  41. LASIX [Concomitant]
     Active Substance: FUROSEMIDE
     Indication: PRODUCT USED FOR UNKNOWN INDICATION
     Dosage: ONE PILLS A DAY
  42. VENCLEXTA [Suspect]
     Active Substance: VENETOCLAX
     Route: 048
     Dates: start: 20180309, end: 20180315
  43. ALLEGRA [Concomitant]
     Active Substance: FEXOFENADINE HYDROCHLORIDE
     Indication: PRODUCT USED FOR UNKNOWN INDICATION
     Route: 048
  44. TRAMADOL. [Concomitant]
     Active Substance: TRAMADOL
     Indication: PRODUCT USED FOR UNKNOWN INDICATION
     Dosage: AS NEEDED
  45. FLOMAX [Concomitant]
     Active Substance: TAMSULOSIN HYDROCHLORIDE
     Indication: PRODUCT USED FOR UNKNOWN INDICATION
  46. LAMOTRIGINE. [Concomitant]
     Active Substance: LAMOTRIGINE
     Indication: TREMOR
     Route: 048
  47. CENTRUM SILVER [Concomitant]
     Active Substance: MINERALS\VITAMINS
     Indication: PRODUCT USED FOR UNKNOWN INDICATION
     Route: 048
  48. HYDROCODONE [Concomitant]
     Active Substance: HYDROCODONE
     Indication: HEADACHE
     Dosage: AS NEEDED
  49. IVIG [Concomitant]
     Active Substance: HUMAN IMMUNOGLOBULIN G
     Indication: PRODUCT USED FOR UNKNOWN INDICATION
     Dosage: FOR THREE DAYS ONCE A MONTH

REACTIONS (55)
  - Haemoglobin abnormal [Recovered/Resolved]
  - Pain [Unknown]
  - Diarrhoea [Not Recovered/Not Resolved]
  - Scar [Not Recovered/Not Resolved]
  - Platelet count decreased [Unknown]
  - Platelet disorder [Recovered/Resolved]
  - Gait disturbance [Not Recovered/Not Resolved]
  - Urticaria [Recovered/Resolved]
  - Blood iron increased [Not Recovered/Not Resolved]
  - Constipation [Not Recovered/Not Resolved]
  - Haemoglobin abnormal [Unknown]
  - Feeling abnormal [Not Recovered/Not Resolved]
  - Asthenia [Recovering/Resolving]
  - Weight increased [Not Recovered/Not Resolved]
  - Pain in extremity [Recovering/Resolving]
  - Blood pressure increased [Unknown]
  - Cough [Recovering/Resolving]
  - Memory impairment [Not Recovered/Not Resolved]
  - Pruritus [Recovered/Resolved]
  - Malaise [Unknown]
  - Temperature intolerance [Not Recovered/Not Resolved]
  - Peripheral swelling [Recovered/Resolved]
  - Back pain [Not Recovered/Not Resolved]
  - Fatigue [Not Recovered/Not Resolved]
  - Lymphadenopathy [Not Recovered/Not Resolved]
  - Respiratory disorder [Recovering/Resolving]
  - Increased tendency to bruise [Not Recovered/Not Resolved]
  - Weight increased [Recovered/Resolved]
  - Dysphonia [Not Recovered/Not Resolved]
  - Swelling [Recovered/Resolved]
  - Muscle tightness [Unknown]
  - Muscular weakness [Not Recovered/Not Resolved]
  - Nausea [Recovering/Resolving]
  - White blood cell count decreased [Recovering/Resolving]
  - Blood count abnormal [Not Recovered/Not Resolved]
  - Feeling abnormal [Recovered/Resolved]
  - Platelet count decreased [Not Recovered/Not Resolved]
  - Communication disorder [Recovering/Resolving]
  - Haemorrhagic diathesis [Not Recovered/Not Resolved]
  - Infusion site urticaria [Recovered/Resolved]
  - Abdominal distension [Recovered/Resolved]
  - Laboratory test abnormal [Recovering/Resolving]
  - Anaemia [Not Recovered/Not Resolved]
  - Dysphonia [Not Recovered/Not Resolved]
  - Oedema peripheral [Recovering/Resolving]
  - Dysphagia [Not Recovered/Not Resolved]
  - Chills [Recovered/Resolved]
  - Pleural effusion [Recovering/Resolving]
  - Red blood cell count decreased [Unknown]
  - Oropharyngeal pain [Not Recovered/Not Resolved]
  - Tremor [Not Recovered/Not Resolved]
  - Painful respiration [Not Recovered/Not Resolved]
  - Lymphocyte count increased [Unknown]
  - Hypotension [Recovering/Resolving]
  - Red blood cell count decreased [Recovered/Resolved]

NARRATIVE: CASE EVENT DATE: 2018
